FAERS Safety Report 20596382 (Version 2)
Quarter: 2022Q2

REPORT INFORMATION
  Report Type: Spontaneous
  Country: JP (occurrence: JP)
  Receive Date: 20220315
  Receipt Date: 20220523
  Transmission Date: 20220721
  Serious: No
  Sender: FDA-Public Use
  Company Number: JP-MSD-M2022-09266

PATIENT
  Age: 69 Year
  Sex: Male

DRUGS (4)
  1. MOLNUPIRAVIR [Suspect]
     Active Substance: MOLNUPIRAVIR
     Indication: COVID-19 treatment
     Dosage: 800 MILLIGRAM, BID (FIRST DOSE AFTER 15:00 O^CLOCK)
     Route: 048
     Dates: start: 20220302, end: 20220302
  2. MOLNUPIRAVIR [Suspect]
     Active Substance: MOLNUPIRAVIR
     Dosage: 1200 MILLIGRAM (TWICE A DAY, 800MILLIGRAM IN THE FIRST TIME AND 400MILLIGRAM IN THE SECOND TIME)
     Route: 048
     Dates: start: 20220303, end: 20220303
  3. MOLNUPIRAVIR [Suspect]
     Active Substance: MOLNUPIRAVIR
     Dosage: 400 MILLIGRAM, BID
     Route: 048
     Dates: start: 20220304, end: 20220304
  4. MOLNUPIRAVIR [Suspect]
     Active Substance: MOLNUPIRAVIR
     Dosage: 800 MILLIGRAM, BID
     Route: 048
     Dates: start: 20220305, end: 20220306

REACTIONS (2)
  - Underdose [Unknown]
  - Product use complaint [Unknown]

NARRATIVE: CASE EVENT DATE: 20220303
